FAERS Safety Report 6045498-0 (Version None)
Quarter: 2009Q1

REPORT INFORMATION
  Report Type: 
  Country: None (occurrence: None)
  Receive Date: 20090121
  Receipt Date: 20090115
  Transmission Date: 20090719
  Serious: Yes (Other)
  Sender: FDA-Public Use
  Company Number: A0763609A

PATIENT
  Age: 66 Year
  Sex: Female

DRUGS (3)
  1. LAMICTAL [Suspect]
     Indication: EPILEPSY
     Route: 048
     Dates: start: 20070701, end: 20071101
  2. THYROID MEDICATION [Concomitant]
  3. AMBIEN [Concomitant]

REACTIONS (6)
  - ALOPECIA [None]
  - CONVULSION [None]
  - DYSKINESIA [None]
  - DYSPHONIA [None]
  - INSOMNIA [None]
  - PRURITUS [None]
